FAERS Safety Report 8156290-5 (Version None)
Quarter: 2012Q1

REPORT INFORMATION
  Report Type: 
  Country: None (occurrence: None)
  Receive Date: 20120216
  Receipt Date: 20120207
  Transmission Date: 20120608
  Serious: Yes (Hospitalization)
  Sender: FDA-Public Use
  Company Number: 201202030

PATIENT
  Age: 22 Year
  Sex: Male

DRUGS (4)
  1. PROGESTIN INJ [Suspect]
  2. TESTOSTERONE [Suspect]
     Indication: PRODUCT USED FOR UNKNOWN INDICATION
  3. ANADROL [Suspect]
  4. SOMATROPIN RDNA [Suspect]

REACTIONS (8)
  - GLOMERULONEPHRITIS [None]
  - HYPERLIPIDAEMIA [None]
  - NEPHROTIC SYNDROME [None]
  - OEDEMA [None]
  - WEIGHT INCREASED [None]
  - HYPERTENSION [None]
  - ERYSIPELAS [None]
  - NEPHROSCLEROSIS [None]
